FAERS Safety Report 9486208 (Version 1)
Quarter: 2013Q3

REPORT INFORMATION
  Report Type: Spontaneous
  Country: JP (occurrence: JP)
  Receive Date: 20130829
  Receipt Date: 20130829
  Transmission Date: 20140515
  Serious: Yes (Other)
  Sender: FDA-Public Use
  Company Number: JP-PFIZER INC-2013249700

PATIENT
  Sex: Female

DRUGS (1)
  1. LYRICA [Suspect]
     Indication: TOOTHACHE
     Dosage: 75MG IN MORNING, 150MG IN EVENING
     Route: 048

REACTIONS (3)
  - Diplopia [Not Recovered/Not Resolved]
  - Cataract [Unknown]
  - Vision blurred [Recovering/Resolving]
